FAERS Safety Report 9727791 (Version 2)
Quarter: 2014Q1

REPORT INFORMATION
  Report Type: Spontaneous
  Country: BR (occurrence: US)
  Receive Date: 20131204
  Receipt Date: 20140124
  Transmission Date: 20141002
  Serious: No
  Sender: FDA-Public Use
  Company Number: BR-009507513-1312USA000729

PATIENT
  Age: 59 Year
  Sex: Female

DRUGS (1)
  1. SITAGLIPTIN PHOSPHATE [Suspect]
     Dosage: UNK, UNKNOWN
     Route: 048
     Dates: start: 2010

REACTIONS (1)
  - Rash [Unknown]
